FAERS Safety Report 13089521 (Version 2)
Quarter: 2017Q1

REPORT INFORMATION
  Report Type: Spontaneous
  Country: US (occurrence: US)
  Receive Date: 20170105
  Receipt Date: 20170131
  Transmission Date: 20170428
  Serious: No
  Sender: FDA-Public Use
  Company Number: US-PFIZER INC-2017004281

PATIENT
  Age: 67 Year
  Sex: Male
  Weight: 69.85 kg

DRUGS (2)
  1. LATANOPROST. [Suspect]
     Active Substance: LATANOPROST
     Indication: GLAUCOMA
     Dosage: ONE DROP PER EYE ONCE A DAY
     Dates: start: 2015
  2. LATANOPROST. [Suspect]
     Active Substance: LATANOPROST
     Dosage: ONE DROP PER EYE ONCE A DAY

REACTIONS (2)
  - Incorrect dose administered [Not Recovered/Not Resolved]
  - Product packaging quantity issue [Unknown]

NARRATIVE: CASE EVENT DATE: 2015
